FAERS Safety Report 23950347 (Version 2)
Quarter: 2024Q4

REPORT INFORMATION
  Report Type: Spontaneous
  Country: US (occurrence: US)
  Receive Date: 20240607
  Receipt Date: 20241025
  Transmission Date: 20250115
  Serious: No
  Sender: DAIICHI
  Company Number: US-DAIICHI SANKYO, INC.-DSU-2024-109121AA

PATIENT
  Sex: Female

DRUGS (2)
  1. VANFLYTA [Suspect]
     Active Substance: QUIZARTINIB DIHYDROCHLORIDE
     Indication: Acute myeloid leukaemia
     Dosage: 35.4 MG ON DAYS 6-19 OF THE 28 DAY CYCLE
     Route: 048
     Dates: start: 20240125
  2. VANFLYTA [Suspect]
     Active Substance: QUIZARTINIB DIHYDROCHLORIDE
     Dosage: 26.5 MG (1 TABLET), QD
     Route: 048
     Dates: start: 20240125

REACTIONS (2)
  - Bone marrow transplant [Not Recovered/Not Resolved]
  - Disease progression [Not Recovered/Not Resolved]
